FAERS Safety Report 7860786-0 (Version None)
Quarter: 2011Q4

REPORT INFORMATION
  Report Type: 
  Country: None (occurrence: None)
  Receive Date: 20111027
  Receipt Date: 20111012
  Transmission Date: 20120403
  Serious: Yes (Hospitalization, Other)
  Sender: FDA-Public Use
  Company Number: US-BAYER-2011-028328

PATIENT
  Age: 40 Year
  Sex: Female
  Weight: 82 kg

DRUGS (4)
  1. YAZ [Suspect]
     Dosage: UNK
     Dates: start: 20080701, end: 20091201
  2. AMBIEN [Concomitant]
     Dosage: 10 MG, UNK
     Route: 048
     Dates: start: 20080101
  3. PROZAC [Concomitant]
     Dosage: 20 MG, UNK
     Route: 048
     Dates: start: 20080101
  4. NEXIUM [Concomitant]

REACTIONS (7)
  - PAIN [None]
  - MENTAL DISORDER [None]
  - GALLBLADDER DISORDER [None]
  - CHOLECYSTITIS [None]
  - WEIGHT INCREASED [None]
  - INJURY [None]
  - EMOTIONAL DISTRESS [None]
